FAERS Safety Report 5949207-2 (Version None)
Quarter: 2008Q4

REPORT INFORMATION
  Report Type: 
  Country: None (occurrence: None)
  Receive Date: 20081021
  Receipt Date: 20080422
  Transmission Date: 20090506
  Serious: Yes (Other)
  Sender: FDA-Public Use
  Company Number: HQWYE581628JUL05

PATIENT
  Age: 67 Year
  Sex: Female
  Weight: 70.37 kg

DRUGS (5)
  1. PREMARIN [Suspect]
     Indication: MENOPAUSAL SYMPTOMS
     Dosage: ORAL
     Route: 048
     Dates: start: 19900101, end: 20001115
  2. ESTRADERM [Suspect]
  3. ESTRADIOL [Suspect]
  4. MEDROXYPROGESTERONE ACETATE [Suspect]
  5. PROVERA [Suspect]

REACTIONS (1)
  - BREAST CANCER [None]
